FAERS Safety Report 7280255-9 (Version None)
Quarter: 2011Q1

REPORT INFORMATION
  Report Type: 
  Country: None (occurrence: None)
  Receive Date: 20110208
  Receipt Date: 20110125
  Transmission Date: 20110831
  Serious: Yes (Hospitalization)
  Sender: FDA-Public Use
  Company Number: JP-AMGEN-JPNCT2010007752

PATIENT
  Age: 64 Year
  Sex: Male
  Weight: 48 kg

DRUGS (12)
  1. PANITUMUMAB [Suspect]
     Indication: COLORECTAL CANCER
     Dosage: 6 MG/KG, Q2WK
     Route: 041
     Dates: start: 20100827, end: 20101126
  2. ANTIHISTAMINES [Concomitant]
     Dosage: UNK
     Route: 065
  3. FENTANYL CITRATE [Concomitant]
     Dosage: UNK
     Route: 062
  4. DECADRON [Concomitant]
     Route: 042
  5. GRANISETRON HCL [Concomitant]
     Dosage: UNK
     Route: 042
  6. DECADRON                           /00016002/ [Concomitant]
     Dosage: UNK
     Route: 042
  7. ALL OTHER THERAPEUTIC PRODUCTS [Concomitant]
     Dosage: UNK
     Route: 048
  8. IRINOTECAN HYDROCHLORIDE [Concomitant]
     Indication: COLORECTAL CANCER
     Route: 041
     Dates: start: 20100827
  9. LEUCON                             /00300202/ [Concomitant]
     Dosage: UNK
     Route: 048
  10. PRIMPERAN                          /00041901/ [Concomitant]
     Dosage: UNK
     Route: 048
  11. OXINORM                            /00547301/ [Concomitant]
     Dosage: UNK
     Route: 048
  12. MUCOSTA [Concomitant]
     Dosage: UNK
     Route: 048

REACTIONS (2)
  - FEBRILE NEUTROPENIA [None]
  - DERMATITIS ACNEIFORM [None]
